FAERS Safety Report 9129675 (Version 3)
Quarter: 2013Q2

REPORT INFORMATION
  Report Type: Spontaneous
  Country: US (occurrence: US)
  Receive Date: 20130125
  Receipt Date: 20130510
  Transmission Date: 20140414
  Serious: Yes (Other)
  Sender: FDA-Public Use
  Company Number: US-JNJFOC-20130108938

PATIENT
  Age: 66 Year
  Sex: Male

DRUGS (4)
  1. XARELTO [Suspect]
     Indication: THROMBOSIS PROPHYLAXIS
     Route: 048
     Dates: start: 20121220, end: 20130108
  2. XARELTO [Suspect]
     Indication: PULMONARY EMBOLISM
     Route: 048
     Dates: start: 20121220, end: 20130108
  3. LISINOPRIL [Concomitant]
     Indication: HYPERTENSION
     Route: 065
  4. CIALIS [Concomitant]
     Indication: ERECTILE DYSFUNCTION
     Route: 065

REACTIONS (1)
  - Pyrexia [Recovered/Resolved]
